FAERS Safety Report 15314657 (Version 1)
Quarter: 2018Q3

REPORT INFORMATION
  Report Type: Spontaneous
  Country: US (occurrence: US)
  Receive Date: 20180824
  Receipt Date: 20180824
  Transmission Date: 20181010
  Serious: Yes (Other)
  Sender: FDA-Public Use
  Company Number: US-PROCTER_AND_GAMBLE-GS18095159

PATIENT

DRUGS (1)
  1. CREST [Suspect]
     Active Substance: SODIUM FLUORIDE
     Route: 002

REACTIONS (1)
  - Bacterial infection [Unknown]
